FAERS Safety Report 19825911 (Version 1)
Quarter: 2021Q3

REPORT INFORMATION
  Report Type: Spontaneous
  Country: US (occurrence: US)
  Receive Date: 20210914
  Receipt Date: 20210914
  Transmission Date: 20211014
  Serious: Yes (Other)
  Sender: FDA-Public Use
  Company Number: US-BEH-2021135704

PATIENT
  Age: 47 Year
  Sex: Female
  Weight: 48.8 kg

DRUGS (1)
  1. HIZENTRA [Suspect]
     Active Substance: HUMAN IMMUNOGLOBULIN G
     Dosage: 5 GRAM, QW
     Route: 058
     Dates: start: 20210814

REACTIONS (2)
  - Nausea [Not Recovered/Not Resolved]
  - Food interaction [Not Recovered/Not Resolved]

NARRATIVE: CASE EVENT DATE: 20210814
